FAERS Safety Report 6964129-6 (Version None)
Quarter: 2010Q3

REPORT INFORMATION
  Report Type: 
  Country: None (occurrence: None)
  Receive Date: 20100903
  Receipt Date: 20100826
  Transmission Date: 20110219
  Serious: Yes (Other)
  Sender: FDA-Public Use
  Company Number: US-ASTRAZENECA-2009UW06980

PATIENT
  Age: 494 Month
  Sex: Female

DRUGS (6)
  1. SEROQUEL [Suspect]
     Indication: ANXIETY
     Route: 048
     Dates: start: 20011116, end: 20030224
  2. SEROQUEL [Suspect]
     Indication: SLEEP DISORDER
     Route: 048
     Dates: start: 20011116, end: 20030224
  3. SEROQUEL [Suspect]
     Route: 048
     Dates: start: 20030313
  4. SEROQUEL [Suspect]
     Route: 048
     Dates: start: 20030313
  5. TRILEPTAL [Concomitant]
     Dosage: 1 PO QAM AND 2 PO QHS, 2 PO BID
     Route: 048
     Dates: start: 20030313
  6. ALPRAZOLAM [Concomitant]
     Route: 048
     Dates: start: 20030313

REACTIONS (2)
  - DIABETIC NEUROPATHY [None]
  - TYPE 2 DIABETES MELLITUS [None]
